FAERS Safety Report 7013804-6 (Version None)
Quarter: 2010Q3

REPORT INFORMATION
  Report Type: 
  Country: None (occurrence: None)
  Receive Date: 20100924
  Receipt Date: 20100909
  Transmission Date: 20110219
  Serious: Yes (Other)
  Sender: FDA-Public Use
  Company Number: GB-GENENTECH-306535

PATIENT
  Age: 95 Year
  Sex: Female

DRUGS (1)
  1. LUCENTIS [Suspect]
     Indication: CHOROIDAL NEOVASCULARISATION
     Dosage: 5 MG, UNKNOWN
     Route: 031
     Dates: start: 20100119

REACTIONS (1)
  - MYOCARDIAL INFARCTION [None]
